FAERS Safety Report 7956324-4 (Version None)
Quarter: 2011Q4

REPORT INFORMATION
  Report Type: 
  Country: None (occurrence: None)
  Receive Date: 20111125
  Receipt Date: 20111116
  Transmission Date: 20120403
  Serious: Yes (Other)
  Sender: FDA-Public Use
  Company Number: 2011030212

PATIENT
  Age: 56 Year
  Sex: Male
  Weight: 155 kg

DRUGS (7)
  1. PROVENTIL [Concomitant]
  2. MUCINEX [Concomitant]
  3. DALIRESP [Concomitant]
  4. ZEMAIRA [Suspect]
     Indication: OBSTRUCTIVE AIRWAYS DISORDER
     Dosage: SEE IMAGE
     Route: 042
     Dates: start: 20111104, end: 20111104
  5. ZEMAIRA [Suspect]
     Indication: OBSTRUCTIVE AIRWAYS DISORDER
     Dosage: SEE IMAGE
     Route: 042
     Dates: start: 20110325
  6. SPIRIVA [Concomitant]
  7. SYMBICORT [Concomitant]

REACTIONS (6)
  - INFUSION RELATED REACTION [None]
  - DIZZINESS [None]
  - CHEST X-RAY ABNORMAL [None]
  - LOSS OF CONSCIOUSNESS [None]
  - BONE PAIN [None]
  - MYALGIA [None]
